FAERS Safety Report 9827527 (Version 1)
Quarter: 2014Q1

REPORT INFORMATION
  Report Type: Spontaneous
  Country: US (occurrence: US)
  Receive Date: 20140117
  Receipt Date: 20140117
  Transmission Date: 20141002
  Serious: No
  Sender: FDA-Public Use
  Company Number: US-BIOGENIDEC-2014BI001258

PATIENT
  Sex: Female

DRUGS (8)
  1. TECFIDERA [Suspect]
     Indication: MULTIPLE SCLEROSIS
     Route: 048
     Dates: start: 201310
  2. ZOMIG [Concomitant]
  3. ALPRAZOLAM [Concomitant]
  4. VITAMIN B COMPLEX [Concomitant]
  5. D2000 ULTRA STRENGTH [Concomitant]
  6. VALTREX [Concomitant]
  7. NORCO [Concomitant]
  8. BIOTIN 5000 [Concomitant]

REACTIONS (4)
  - Alopecia [Unknown]
  - Genital pain [Unknown]
  - Vulvovaginal mycotic infection [Unknown]
  - Nausea [Unknown]
